FAERS Safety Report 9965765 (Version 1)
Quarter: 2014Q1

REPORT INFORMATION
  Report Type: Report from Study
  Country: US (occurrence: US)
  Receive Date: 20140305
  Receipt Date: 20140305
  Transmission Date: 20141002
  Serious: No
  Sender: FDA-Public Use
  Company Number: US-ABBVIE-13P-163-1125722-00

PATIENT
  Age: 42 Year
  Sex: Female

DRUGS (4)
  1. HUMIRA [Suspect]
     Indication: CROHN^S DISEASE
     Dates: start: 20130717, end: 20130717
  2. HUMIRA [Suspect]
     Dates: start: 20130718, end: 20130718
  3. PREDNISONE [Concomitant]
     Indication: CROHN^S DISEASE
  4. UCERIS [Concomitant]
     Indication: CROHN^S DISEASE

REACTIONS (3)
  - Livedo reticularis [Recovered/Resolved]
  - Erythema [Recovered/Resolved]
  - Erythema [Not Recovered/Not Resolved]
